FAERS Safety Report 8151629-9 (Version None)
Quarter: 2012Q1

REPORT INFORMATION
  Report Type: 
  Country: None (occurrence: None)
  Receive Date: 20120220
  Receipt Date: 20120214
  Transmission Date: 20120608
  Serious: Yes (Other)
  Sender: FDA-Public Use
  Company Number: US-ASTRAZENECA-2011SE25471

PATIENT
  Age: 49 Year
  Sex: Female

DRUGS (2)
  1. NEXIUM [Suspect]
     Route: 048
  2. CITRUCEL [Concomitant]

REACTIONS (15)
  - APHAGIA [None]
  - DIZZINESS POSTURAL [None]
  - PAIN [None]
  - NAUSEA [None]
  - DRUG DOSE OMISSION [None]
  - BURNING SENSATION [None]
  - DYSPEPSIA [None]
  - GASTROOESOPHAGEAL REFLUX DISEASE [None]
  - ABDOMINAL PAIN [None]
  - VOMITING [None]
  - DRUG PRESCRIBING ERROR [None]
  - ULCER HAEMORRHAGE [None]
  - FEELING ABNORMAL [None]
  - HAEMORRHAGE [None]
  - RECTAL HAEMORRHAGE [None]
